FAERS Safety Report 5943314-6 (Version None)
Quarter: 2008Q4

REPORT INFORMATION
  Report Type: 
  Country: None (occurrence: None)
  Receive Date: 20081106
  Receipt Date: 20081103
  Transmission Date: 20090506
  Serious: Yes (Death, Hospitalization, Other)
  Sender: FDA-Public Use
  Company Number: PHBS2008IT06205

PATIENT
  Age: 36 Year
  Sex: Female

DRUGS (7)
  1. CYCLOSPORINE [Suspect]
     Indication: LIVER TRANSPLANT
     Dosage: 50 MG, BID
     Route: 065
  2. MYCOPHENOLATE MOFETIL [Interacting]
     Indication: LIVER TRANSPLANT
     Dosage: 1 G, BID
     Route: 065
  3. STEROIDS NOS [Interacting]
     Indication: LIVER TRANSPLANT
     Dosage: 20 MG/D
  4. KIVEXA [Interacting]
  5. ATAZANAVIR SULFATE [Interacting]
  6. LAMIVUDINE [Interacting]
  7. ABACAVIR [Interacting]

REACTIONS (8)
  - BLOOD HIV RNA INCREASED [None]
  - CD4 LYMPHOCYTES INCREASED [None]
  - DRUG INTERACTION [None]
  - HEPATIC FAILURE [None]
  - LAPAROTOMY [None]
  - MULTI-ORGAN FAILURE [None]
  - PORTAL VEIN THROMBOSIS [None]
  - SEPSIS [None]
